FAERS Safety Report 25837051 (Version 1)
Quarter: 2025Q3

REPORT INFORMATION
  Report Type: Spontaneous
  Country: US (occurrence: US)
  Receive Date: 20250923
  Receipt Date: 20250923
  Transmission Date: 20251021
  Serious: No
  Sender: RANBAXY
  Company Number: US-SUN PHARMACEUTICAL INDUSTRIES LTD-2025R1-491463

PATIENT
  Sex: Female

DRUGS (4)
  1. BACTRIM [Suspect]
     Active Substance: SULFAMETHOXAZOLE\TRIMETHOPRIM
     Indication: Mycobacterium avium complex infection
     Route: 065
     Dates: start: 202406
  2. CEFDINIR [Suspect]
     Active Substance: CEFDINIR
     Indication: Mycobacterium avium complex infection
     Route: 065
     Dates: start: 202405
  3. LEVAQUIN [Suspect]
     Active Substance: LEVOFLOXACIN
     Indication: Mycobacterium avium complex infection
     Route: 065
     Dates: start: 202407
  4. AUGMENTIN [Concomitant]
     Active Substance: AMOXICILLIN\CLAVULANATE POTASSIUM
     Indication: Mycobacterium avium complex infection
     Route: 065
     Dates: start: 202408

REACTIONS (4)
  - Drug ineffective [Unknown]
  - Fatigue [Unknown]
  - Dyspnoea exertional [Unknown]
  - Decreased appetite [Unknown]
